FAERS Safety Report 7192036-5 (Version None)
Quarter: 2010Q4

REPORT INFORMATION
  Report Type: 
  Country: None (occurrence: None)
  Receive Date: 20101223
  Receipt Date: 20101216
  Transmission Date: 20110411
  Serious: Yes (Other)
  Sender: FDA-Public Use
  Company Number: US-JNJCH-2010029124

PATIENT
  Age: 51 Year
  Sex: Female
  Weight: 53.5 kg

DRUGS (1)
  1. COOL MINT LISTERINE POCKETPAKS [Suspect]
     Indication: DENTAL DISORDER PROPHYLAXIS
     Dosage: TEXT:1-2 AS NEEDED
     Route: 048
     Dates: start: 20091215, end: 20101215

REACTIONS (5)
  - ACCIDENTAL EXPOSURE [None]
  - APPLICATION SITE BURN [None]
  - LIP BLISTER [None]
  - LIP HAEMORRHAGE [None]
  - LIP PAIN [None]
